FAERS Safety Report 20153102 (Version 1)
Quarter: 2021Q4

REPORT INFORMATION
  Report Type: Spontaneous
  Country: SI (occurrence: SI)
  Receive Date: 20211206
  Receipt Date: 20211206
  Transmission Date: 20220303
  Serious: Yes (Hospitalization, Other)
  Sender: FDA-Public Use
  Company Number: SI-ABBVIE-21K-261-4179621-00

PATIENT
  Age: 18 Year
  Sex: Female

DRUGS (17)
  1. VALPROATE SODIUM [Interacting]
     Active Substance: VALPROATE SODIUM
     Indication: Epilepsy
     Route: 065
  2. ROCURONIUM BROMIDE [Interacting]
     Active Substance: ROCURONIUM BROMIDE
     Indication: Muscle relaxant therapy
     Dosage: 30 MG AT INDUCTION AND 40 MG IN SMALLER DOSES DURING THE OPERATION
     Route: 065
  3. ROCURONIUM BROMIDE [Interacting]
     Active Substance: ROCURONIUM BROMIDE
     Route: 065
  4. ROCURONIUM BROMIDE [Interacting]
     Active Substance: ROCURONIUM BROMIDE
     Dosage: 40 UNKNOWN IN SMALLER DOSES
     Route: 065
  5. LEVOCARNITINE [Concomitant]
     Active Substance: LEVOCARNITINE
     Indication: Product used for unknown indication
  6. DEXTROSE [Concomitant]
     Active Substance: DEXTROSE
     Indication: Product used for unknown indication
  7. SODIUM BENZOATE [Concomitant]
     Active Substance: SODIUM BENZOATE
     Indication: Product used for unknown indication
  8. METRONIDAZOLE [Concomitant]
     Active Substance: METRONIDAZOLE
     Indication: Product used for unknown indication
  9. LEVOTHYROXINE [Concomitant]
     Active Substance: LEVOTHYROXINE
     Indication: Product used for unknown indication
  10. PANTOPRAZOLE [Concomitant]
     Active Substance: PANTOPRAZOLE
     Indication: Product used for unknown indication
  11. SUFENTANIL [Concomitant]
     Active Substance: SUFENTANIL
     Indication: Product used for unknown indication
  12. INSULIN NOS [Concomitant]
     Active Substance: INSULIN NOS
     Indication: Product used for unknown indication
  13. PROPOFOL [Concomitant]
     Active Substance: PROPOFOL
     Indication: Product used for unknown indication
  14. SEVOFLURANE [Concomitant]
     Active Substance: SEVOFLURANE
     Indication: Product used for unknown indication
  15. MIDAZOLAM [Concomitant]
     Active Substance: MIDAZOLAM
     Indication: Product used for unknown indication
  16. SUGAMMADEX [Concomitant]
     Active Substance: SUGAMMADEX
     Indication: Product used for unknown indication
  17. COENXYME Q10 [Concomitant]
     Indication: Product used for unknown indication

REACTIONS (3)
  - Drug interaction [Unknown]
  - Abdominal rigidity [Unknown]
  - Drug ineffective [Unknown]
